FAERS Safety Report 16227932 (Version 1)
Quarter: 2019Q2

REPORT INFORMATION
  Report Type: Spontaneous
  Country: US (occurrence: US)
  Receive Date: 20190422
  Receipt Date: 20190422
  Transmission Date: 20190711
  Serious: Yes (Disabling)
  Sender: FDA-Public Use
  Company Number: None

PATIENT
  Age: 85 Year
  Sex: Female
  Weight: 56.7 kg

DRUGS (3)
  1. ZOLEDRONIC ACID IVPB [Concomitant]
  2. CYANOCOBALAMIN IM INJECTION [Concomitant]
  3. FULVESTRANT. [Suspect]
     Active Substance: FULVESTRANT
     Indication: BREAST CANCER
     Dosage: ?          OTHER FREQUENCY:Q28 DAYS;?
     Route: 030
     Dates: start: 20161215, end: 20181204

REACTIONS (4)
  - Debridement [None]
  - Injection site necrosis [None]
  - Injection site induration [None]
  - Embolia cutis medicamentosa [None]

NARRATIVE: CASE EVENT DATE: 20181204
